FAERS Safety Report 6925391-9 (Version None)
Quarter: 2010Q3

REPORT INFORMATION
  Report Type: 
  Country: None (occurrence: None)
  Receive Date: 20100816
  Receipt Date: 20100805
  Transmission Date: 20110219
  Serious: Yes (Hospitalization)
  Sender: FDA-Public Use
  Company Number: FR-JNJFOC-20100802141

PATIENT
  Age: 64 Year
  Sex: Female

DRUGS (8)
  1. REMICADE [Suspect]
     Indication: RHEUMATOID ARTHRITIS
     Route: 042
  2. METHOTREXATE [Concomitant]
  3. COZAAR [Concomitant]
  4. PLAVIX [Concomitant]
  5. ZELITREX [Concomitant]
  6. NEXIUM [Concomitant]
  7. HYPERIUM [Concomitant]
  8. LYSANXIA [Concomitant]

REACTIONS (3)
  - ABDOMINAL PAIN UPPER [None]
  - ANXIETY [None]
  - FEELING ABNORMAL [None]
